FAERS Safety Report 5809515-2 (Version None)
Quarter: 2008Q3

REPORT INFORMATION
  Report Type: 
  Country: None (occurrence: None)
  Receive Date: 20080715
  Receipt Date: 20080703
  Transmission Date: 20090109
  Serious: Yes (Disabling)
  Sender: FDA-Public Use
  Company Number: GB-ELI_LILLY_AND_COMPANY-GB200807001300

PATIENT
  Age: 76 Year
  Sex: Female
  Weight: 68 kg

DRUGS (8)
  1. FORTEO [Suspect]
     Indication: OSTEOPOROSIS
     Dosage: 20 UG, UNKNOWN
     Route: 058
     Dates: start: 20071101
  2. FORTEO [Suspect]
     Dosage: 20 UG, UNKNOWN
     Route: 065
     Dates: end: 20080601
  3. CLOPIDOGREL [Concomitant]
     Indication: ANGINA PECTORIS
     Dosage: 75 MG, UNKNOWN
     Route: 048
     Dates: start: 20040101
  4. LANSOPRAZOLE [Concomitant]
     Dosage: 20 MG, DAILY (1/D)
     Route: 048
  5. ROSUVASTATIN CALCIUM [Concomitant]
     Indication: HYPERCHOLESTEROLAEMIA
     Dosage: 10 MG, DAILY (1/D)
     Route: 048
     Dates: end: 20080201
  6. ALBUTEROL [Concomitant]
     Indication: ASTHMA
     Dosage: 2 D/F, AS NEEDED
     Route: 055
  7. SUMATRIPTAN SUCCINATE [Concomitant]
     Indication: MIGRAINE
     Dosage: UNK, AS NEEDED
     Route: 048
  8. SYMBICORT [Concomitant]
     Indication: ASTHMA
     Dosage: 2 D/F, DAILY (1/D)
     Route: 055

REACTIONS (1)
  - SERONEGATIVE ARTHRITIS [None]
